FAERS Safety Report 17591474 (Version 1)
Quarter: 2020Q1

REPORT INFORMATION
  Report Type: Spontaneous
  Country: US (occurrence: US)
  Receive Date: 20200327
  Receipt Date: 20200327
  Transmission Date: 20200409
  Serious: Yes (Death)
  Sender: FDA-Public Use
  Company Number: None

PATIENT
  Age: 17 Year
  Sex: Female
  Weight: 67.5 kg

DRUGS (2)
  1. DEPO-PROVERA [Suspect]
     Active Substance: MEDROXYPROGESTERONE ACETATE
     Indication: CONTRACEPTION
     Dosage: ?          QUANTITY:1 INJECTION(S);OTHER FREQUENCY:1X EVERY 90 DAYS;?
     Route: 030
     Dates: start: 20191212, end: 20200312
  2. IRON SUPPLEMENT [Concomitant]
     Active Substance: IRON

REACTIONS (5)
  - Completed suicide [None]
  - Hormone level abnormal [None]
  - Mood altered [None]
  - Anger [None]
  - Product use issue [None]

NARRATIVE: CASE EVENT DATE: 20191212
